FAERS Safety Report 7447130-8 (Version None)
Quarter: 2011Q2

REPORT INFORMATION
  Report Type: 
  Country: None (occurrence: None)
  Receive Date: 20110429
  Receipt Date: 20110422
  Transmission Date: 20111010
  Serious: Yes (Other)
  Sender: FDA-Public Use
  Company Number: US-ROCHE-773663

PATIENT
  Sex: Female

DRUGS (2)
  1. BONIVA [Suspect]
     Dosage: FORM: INFUSION
     Route: 065
  2. FOSAMAX [Concomitant]

REACTIONS (3)
  - OESOPHAGEAL DISORDER [None]
  - ANKLE FRACTURE [None]
  - OSTEOMYELITIS [None]
